FAERS Safety Report 6069050-6 (Version None)
Quarter: 2009Q1

REPORT INFORMATION
  Report Type: 
  Country: None (occurrence: None)
  Receive Date: 20090206
  Receipt Date: 20090128
  Transmission Date: 20090719
  Serious: Yes (Hospitalization)
  Sender: FDA-Public Use
  Company Number: FR-ROCHE-611292

PATIENT
  Sex: Male
  Weight: 73 kg

DRUGS (6)
  1. CAPECITABINE [Suspect]
     Dosage: AS PER PROTOCOL ON DAY 1-14 ON 21 DAY. TEMPORARILY INTERRUPTED. LAST DOSE: 05 MAR 08.
     Route: 042
     Dates: start: 20061107
  2. CAPECITABINE [Suspect]
     Route: 042
  3. BEVACIZUMAB [Suspect]
     Route: 042
     Dates: start: 20061107, end: 20070731
  4. BEVACIZUMAB [Suspect]
     Dosage: DATE OF LAST DOSE PRIOR TO SAE: 20 FEB 08.
     Route: 042
  5. IRINOTECAN HCL [Suspect]
     Dosage: AS PER PROTOCOL: IRINOTECAN DAY 1: A 90 MIN INFUSIONOF 200MG/M2.
     Route: 042
     Dates: start: 20061107, end: 20070416
  6. IRINOTECAN HCL [Suspect]
     Dosage: DATE OF LAST DOSE PRIOR TO SAE: 20 FEB 08.
     Route: 042

REACTIONS (2)
  - PERITONITIS [None]
  - THERAPEUTIC EMBOLISATION [None]
